FAERS Safety Report 23732299 (Version 1)
Quarter: 2024Q2

REPORT INFORMATION
  Report Type: Spontaneous
  Country: US (occurrence: US)
  Receive Date: 20240411
  Receipt Date: 20240411
  Transmission Date: 20240715
  Serious: Yes (Other)
  Sender: FDA-Public Use
  Company Number: US-PFIZER INC-PV202200018154

PATIENT
  Age: 64 Year
  Sex: Female
  Weight: 113.85 kg

DRUGS (5)
  1. IBRANCE [Suspect]
     Active Substance: PALBOCICLIB
     Indication: Breast cancer metastatic
     Dosage: 100MG TABLET, ONE AT NIGHT AT BEDTIME, 21 DAYS ON AND 7 DAYS OFF
     Route: 048
     Dates: start: 2022, end: 2024
  2. GABAPENTIN [Concomitant]
     Active Substance: GABAPENTIN
     Indication: Neuralgia
     Dosage: 300MG CAPSULE THREE IN THE MORNING, ONE IN THE AFTERNOON, THREE AT BEDTIME
  3. GABAPENTIN [Concomitant]
     Active Substance: GABAPENTIN
     Indication: Bone pain
  4. EXEMESTANE [Concomitant]
     Active Substance: EXEMESTANE
     Dosage: 25MG TABLET ONCE AT BEDTIME
  5. TRAZODONE [Concomitant]
     Active Substance: TRAZODONE HYDROCHLORIDE
     Indication: Sleep disorder
     Dosage: 200 MG, 1X/DAY

REACTIONS (3)
  - Tooth extraction [Unknown]
  - Pulmonary thrombosis [Unknown]
  - Ear infection [Unknown]
